FAERS Safety Report 13239944 (Version 4)
Quarter: 2018Q1

REPORT INFORMATION
  Report Type: Spontaneous
  Country: US (occurrence: US)
  Receive Date: 20170216
  Receipt Date: 20180118
  Transmission Date: 20180508
  Serious: No
  Sender: FDA-Public Use
  Company Number: US-PFIZER INC-2017067913

PATIENT
  Age: 78 Year
  Sex: Female

DRUGS (1)
  1. LYRICA [Suspect]
     Active Substance: PREGABALIN
     Indication: ESSENTIAL HYPERTENSION
     Dosage: 600 MG, DAILY[2 CAPSULE BY MOUTH IN THE AM AND 1 IN THE PM]
     Route: 048

REACTIONS (2)
  - Muscle spasms [Unknown]
  - Product use in unapproved indication [Unknown]
